FAERS Safety Report 8887398 (Version 1)
Quarter: 2012Q4

REPORT INFORMATION
  Report Type: 
  Country: US (occurrence: US)
  Receive Date: 20121101
  Receipt Date: 20121101
  Transmission Date: 20130627
  Serious: Yes (Death, Life-Threatening, Disabling)
  Sender: FDA-Public Use
  Company Number: US-009507513-1210USA013517

PATIENT

DRUGS (1)
  1. INTEGRILIN [Suspect]
     Dosage: UNK
     Dates: start: 20120926

REACTIONS (1)
  - Platelet count decreased [Fatal]
